FAERS Safety Report 13268422 (Version 5)
Quarter: 2017Q4

REPORT INFORMATION
  Report Type: Spontaneous
  Country: US (occurrence: US)
  Receive Date: 20170224
  Receipt Date: 20171114
  Transmission Date: 20180320
  Serious: Yes (Congenital Anomaly, Other)
  Sender: FDA-Public Use
  Company Number: PHEH2017US005419

PATIENT
  Sex: Female

DRUGS (1)
  1. ZOFRAN [Suspect]
     Active Substance: ONDANSETRON HYDROCHLORIDE
     Indication: FOETAL EXPOSURE DURING PREGNANCY
     Dosage: MOTHER DOSE: 04 MG, Q6H
     Route: 064

REACTIONS (45)
  - Nasopharyngitis [Unknown]
  - Impetigo [Unknown]
  - Upper respiratory tract infection [Recovered/Resolved]
  - Dermatitis atopic [Unknown]
  - Urinary incontinence [Unknown]
  - Pyrexia [Unknown]
  - Neck pain [Unknown]
  - Language disorder [Unknown]
  - Epistaxis [Unknown]
  - Influenza [Recovered/Resolved]
  - Otitis media acute [Recovered/Resolved]
  - Decreased appetite [Unknown]
  - Dermatitis diaper [Recovered/Resolved]
  - Mucocutaneous candidiasis [Recovered/Resolved]
  - Eczema [Recovered/Resolved]
  - Cough [Recovered/Resolved]
  - Rhinitis [Recovered/Resolved]
  - Oppositional defiant disorder [Unknown]
  - Injury [Unknown]
  - Rhinorrhoea [Unknown]
  - Atrial septal defect [Unknown]
  - Foetal exposure during pregnancy [Unknown]
  - Foot deformity [Unknown]
  - Conjunctivitis allergic [Unknown]
  - Gastroenteritis viral [Recovered/Resolved]
  - Middle ear effusion [Unknown]
  - Tonsillar hypertrophy [Recovered/Resolved]
  - Dysuria [Unknown]
  - Brain contusion [Unknown]
  - Urticaria [Unknown]
  - Bronchitis [Recovered/Resolved]
  - Foreign body in respiratory tract [Recovered/Resolved]
  - Abnormal behaviour [Unknown]
  - Abdominal migraine [Unknown]
  - Symbolic dysfunction [Unknown]
  - Ventricular septal defect [Unknown]
  - Tonsillitis streptococcal [Recovered/Resolved]
  - Attention deficit/hyperactivity disorder [Unknown]
  - Hypoacusis [Unknown]
  - Viral pharyngitis [Unknown]
  - Pharyngitis [Recovered/Resolved]
  - Arthropod bite [Unknown]
  - Lice infestation [Recovered/Resolved]
  - Costochondritis [Unknown]
  - Rash [Unknown]
